FAERS Safety Report 25763610 (Version 1)
Quarter: 2025Q3

REPORT INFORMATION
  Report Type: Spontaneous
  Country: US (occurrence: US)
  Receive Date: 20250905
  Receipt Date: 20250905
  Transmission Date: 20251021
  Serious: No
  Sender: DOMPE FARMACEUTICI
  Company Number: US-FARMAPROD-202410-3694

PATIENT
  Sex: Female

DRUGS (14)
  1. OXERVATE [Suspect]
     Active Substance: CENEGERMIN-BKBJ
     Indication: Neurotrophic keratopathy
     Route: 047
     Dates: start: 20241015
  2. MAGNESIUM GLYCINATE [Concomitant]
     Active Substance: MAGNESIUM GLYCINATE
  3. MELATONIN [Concomitant]
     Active Substance: MELATONIN
  4. HERBALS\TURMERIC [Concomitant]
     Active Substance: HERBALS\TURMERIC
  5. FLAXSEED [Concomitant]
     Active Substance: FLAX SEED
  6. ALLEGRA ALLERGY [Concomitant]
     Active Substance: FEXOFENADINE HYDROCHLORIDE
  7. VITAMIN D3 [Concomitant]
     Active Substance: CHOLECALCIFEROL
  8. ASPIRIN [Concomitant]
     Active Substance: ASPIRIN
  9. MELOXICAM [Concomitant]
     Active Substance: MELOXICAM
  10. ERYTHROMYCIN [Concomitant]
     Active Substance: ERYTHROMYCIN
  11. FLUOROMETHOLONE [Concomitant]
     Active Substance: FLUOROMETHOLONE
  12. RESTASIS [Concomitant]
     Active Substance: CYCLOSPORINE
  13. AMLODIPINE BESYLATE [Concomitant]
     Active Substance: AMLODIPINE BESYLATE
  14. LISINOPRIL [Concomitant]
     Active Substance: LISINOPRIL

REACTIONS (4)
  - Dry eye [Unknown]
  - Periorbital pain [Unknown]
  - Headache [Unknown]
  - Muscle spasms [Unknown]
